FAERS Safety Report 10690747 (Version 3)
Quarter: 2015Q3

REPORT INFORMATION
  Report Type: Report from Study
  Country: US (occurrence: US)
  Receive Date: 20150105
  Receipt Date: 20150819
  Transmission Date: 20151125
  Serious: No
  Sender: FDA-Public Use
  Company Number: US-GILEAD-2015-0130129

PATIENT
  Age: 54 Year
  Sex: Female

DRUGS (10)
  1. AMBRISENTAN [Suspect]
     Active Substance: AMBRISENTAN
     Indication: AMYLOIDOSIS
     Dosage: 5 MG, QD
     Route: 065
     Dates: start: 20141105, end: 201411
  2. MAGNESIUM [Concomitant]
     Active Substance: MAGNESIUM
  3. OPSUMIT [Concomitant]
     Active Substance: MACITENTAN
  4. SILDENAFIL. [Concomitant]
     Active Substance: SILDENAFIL
  5. OMEPRAZOLE. [Concomitant]
     Active Substance: OMEPRAZOLE
  6. VITAMIN B6 [Concomitant]
     Active Substance: PYRIDOXINE HYDROCHLORIDE
  7. ACYCLOVIR                          /00587301/ [Concomitant]
     Active Substance: ACYCLOVIR
  8. OXYCONTIN [Concomitant]
     Active Substance: OXYCODONE HYDROCHLORIDE
  9. AMBRISENTAN [Suspect]
     Active Substance: AMBRISENTAN
     Indication: PULMONARY ARTERIAL HYPERTENSION
     Dosage: 5 MG, QD (0.5 TAB)
     Route: 065
     Dates: start: 201411, end: 20141220
  10. LORAZEPAM. [Concomitant]
     Active Substance: LORAZEPAM

REACTIONS (6)
  - Eye swelling [Recovered/Resolved]
  - Insomnia [Recovered/Resolved]
  - Sinusitis [Recovered/Resolved]
  - Influenza like illness [Recovered/Resolved]
  - Tinnitus [Recovered/Resolved]
  - Dysphonia [Recovered/Resolved]

NARRATIVE: CASE EVENT DATE: 20141106
